FAERS Safety Report 5615128-8 (Version None)
Quarter: 2008Q1

REPORT INFORMATION
  Report Type: 
  Country: None (occurrence: None)
  Receive Date: 20080206
  Receipt Date: 20070619
  Transmission Date: 20080703
  Serious: Yes (Other)
  Sender: FDA-Public Use
  Company Number: A0658247A

PATIENT
  Age: 71 Year
  Sex: Female

DRUGS (2)
  1. ARIXTRA [Suspect]
     Dosage: 2.5MG PER DAY
     Route: 058
     Dates: start: 20070614
  2. PREMARIN [Concomitant]

REACTIONS (1)
  - PULMONARY EMBOLISM [None]
